FAERS Safety Report 8773124 (Version 3)
Quarter: 2013Q2

REPORT INFORMATION
  Report Type: Spontaneous
  Country: US (occurrence: US)
  Receive Date: 20120907
  Receipt Date: 20130531
  Transmission Date: 20140414
  Serious: Yes (Disabling)
  Sender: FDA-Public Use
  Company Number: US-009507513-1208USA011363

PATIENT
  Age: 48 Year
  Sex: Male

DRUGS (2)
  1. JANUVIA [Suspect]
  2. METFORMIN [Concomitant]
     Indication: TYPE 2 DIABETES MELLITUS

REACTIONS (2)
  - Arthralgia [Recovering/Resolving]
  - Rash [Recovered/Resolved]
